FAERS Safety Report 24767430 (Version 1)
Quarter: 2024Q4

REPORT INFORMATION
  Report Type: Report from Study
  Country: US (occurrence: US)
  Receive Date: 20241223
  Receipt Date: 20241223
  Transmission Date: 20250115
  Serious: Yes (Other)
  Sender: SANOFI AVENTIS
  Company Number: US-SANOFI-02175076

PATIENT
  Age: 74 Year
  Sex: Male
  Weight: 73.4 kg

DRUGS (25)
  1. DUPILUMAB [Suspect]
     Active Substance: DUPILUMAB
     Indication: Asthma
     Dosage: 300 MG, QOW
     Route: 058
     Dates: start: 20240411, end: 20240705
  2. SINGULAIR [Concomitant]
     Active Substance: MONTELUKAST SODIUM
     Indication: Asthma
     Dosage: 10 MG, HS (TAKE 1 TABLET (10 MG TOTAL) BY MOUTH EVERY EVENING)
     Dates: start: 20210904
  3. SYMBICORT [Concomitant]
     Active Substance: BUDESONIDE\FORMOTEROL FUMARATE DIHYDRATE
     Indication: Asthma
     Dosage: 160 UG, BID
     Dates: start: 20230823
  4. SYMBICORT [Concomitant]
     Active Substance: BUDESONIDE\FORMOTEROL FUMARATE DIHYDRATE
     Dosage: 2 PUFFS BY INHALATION TWICE DAILY
     Dates: start: 20240301
  5. VITAMIN B COMPLEX [Concomitant]
     Active Substance: CYANOCOBALAMIN\DEXPANTHENOL\NIACINAMIDE\PYRIDOXINE HYDROCHLORIDE\RIBOFLAVIN 5^-PHOSPHATE SODIUM\THIA
     Dosage: TAKE 1 TABLET BY MOUTH ONCE A DAY
     Route: 048
     Dates: start: 202410
  6. DICLOFENAC SODIUM [Concomitant]
     Active Substance: DICLOFENAC SODIUM
     Indication: Arthralgia
     Dosage: APPLY TOPICALLY TWICE DAILY
     Route: 061
     Dates: start: 202308
  7. VIAGRA [Concomitant]
     Active Substance: SILDENAFIL CITRATE
     Indication: Erectile dysfunction
     Dosage: TAKE 1 TABLET (50 MG TOTAL) BY MOUTH EVERY 24 HOURS AS NEEDED
     Route: 048
  8. LOTRISONE [Concomitant]
     Active Substance: BETAMETHASONE DIPROPIONATE\CLOTRIMAZOLE
     Dosage: APPLY TOPICALLY TWICE DAILY FOR 30 DAYS
  9. CRESTOR [Concomitant]
     Active Substance: ROSUVASTATIN CALCIUM
     Indication: Blood cholesterol
     Dosage: 5MG, HS
     Route: 048
     Dates: start: 200507
  10. MOBIC [Concomitant]
     Active Substance: MELOXICAM
     Indication: Neuropathy peripheral
     Dosage: TAKE 1 TABLET (15 MG TOTAL) BY MOUTH ONCE A DAY
     Route: 048
     Dates: start: 202308
  11. MOBIC [Concomitant]
     Active Substance: MELOXICAM
     Indication: Arthralgia
  12. BENEFIBER [Concomitant]
     Active Substance: STARCH, WHEAT
     Dosage: 3 G, QD
     Route: 048
  13. MELATONIN [Concomitant]
     Active Substance: MELATONIN
     Indication: Supplementation therapy
     Dosage: TAKE 1-2 TABLETS (1-2 MG TOTAL) BY MOUTH EVERY NIGHT
     Route: 048
  14. TYLENOL [Concomitant]
     Active Substance: ACETAMINOPHEN
     Indication: Arthralgia
     Dosage: 500 MG EVERY 4 HOURS
     Route: 048
     Dates: start: 202308
  15. TYLENOL [Concomitant]
     Active Substance: ACETAMINOPHEN
     Dosage: 1 OR 2 GELCAPS, PRN
  16. EPINEPHRINE [Concomitant]
     Active Substance: EPINEPHRINE
     Indication: Anaphylactic reaction
     Dosage: 0.3 ML (0.3 MG TOTAL) INTO THE MUSCLE ONCE,  PRN (AS NEEDED)
     Route: 030
  17. ARNICA MONTANA FLOWER [Concomitant]
     Active Substance: ARNICA MONTANA FLOWER
     Dosage: APPLY EXTERNALLY ROUTE TWICE DAILY
  18. VENTOLIN HFA [Concomitant]
     Active Substance: ALBUTEROL SULFATE
     Dosage: 1-2 PUFFS BY INHALATION EVERY 6 HOURS
  19. NORVASC [Concomitant]
     Active Substance: AMLODIPINE BESYLATE
     Indication: Hypertension
     Dosage: 5 MG, QD
     Route: 048
  20. FASENRA [Concomitant]
     Active Substance: BENRALIZUMAB
     Dosage: 30 MG, Q8W
     Route: 058
  21. FASENRA [Concomitant]
     Active Substance: BENRALIZUMAB
     Dosage: 30 MG, Q4W
  22. MINERALS\VITAMINS [Concomitant]
     Active Substance: MINERALS\VITAMINS
     Indication: Supplementation therapy
     Dosage: TAKE BY MOUTH ONCE A DAY
     Route: 048
  23. PREVNAR 20 [Concomitant]
     Active Substance: PNEUMOCOCCAL 20-VALENT CONJUGATE VACCINE
  24. TRIAMCINOLONE ACETONIDE [Concomitant]
     Active Substance: TRIAMCINOLONE ACETONIDE
     Dosage: UNK
  25. ALBUTEROL SULFATE [Concomitant]
     Active Substance: ALBUTEROL SULFATE
     Indication: Asthma
     Dosage: UNK UNK, PRN
     Route: 055
     Dates: start: 20210830, end: 202405

REACTIONS (11)
  - Erythromelalgia [Not Recovered/Not Resolved]
  - Plantar fasciitis [Not Recovered/Not Resolved]
  - Pain in extremity [Recovering/Resolving]
  - Neuropathy peripheral [Not Recovered/Not Resolved]
  - Skin burning sensation [Unknown]
  - Paraesthesia [Unknown]
  - Erythema nodosum [Recovered/Resolved]
  - Rash [Recovered/Resolved]
  - Oedema peripheral [Unknown]
  - Dry skin [Unknown]
  - Skin exfoliation [Unknown]

NARRATIVE: CASE EVENT DATE: 20240101
